FAERS Safety Report 8946039 (Version 2)
Quarter: 2013Q1

REPORT INFORMATION
  Report Type: Spontaneous
  Country: US (occurrence: US)
  Receive Date: 20121204
  Receipt Date: 20130102
  Transmission Date: 20140127
  Serious: No
  Sender: FDA-Public Use
  Company Number: US-AMGEN-USASP2012072959

PATIENT
  Age: 72 Year
  Sex: Female

DRUGS (1)
  1. ENBREL [Suspect]
     Indication: RHEUMATOID ARTHRITIS
     Dosage: 50 MG, QWK
     Dates: start: 20120814

REACTIONS (5)
  - Musculoskeletal stiffness [Unknown]
  - Mobility decreased [Unknown]
  - Urinary tract infection [Recovered/Resolved]
  - Muscle twitching [Not Recovered/Not Resolved]
  - Drug ineffective [Not Recovered/Not Resolved]
